FAERS Safety Report 5827086-1 (Version None)
Quarter: 2008Q3

REPORT INFORMATION
  Report Type: 
  Country: None (occurrence: None)
  Receive Date: 20080730
  Receipt Date: 20080724
  Transmission Date: 20090109
  Serious: Yes (Life-Threatening)
  Sender: FDA-Public Use
  Company Number: B0531005A

PATIENT
  Age: 67 Year
  Sex: Female

DRUGS (4)
  1. RYTHMOL [Suspect]
     Dosage: 300MG THREE TIMES PER DAY
     Dates: start: 20080707, end: 20080707
  2. ISOPTIN [Suspect]
     Dosage: 240MG PER DAY
     Dates: start: 20080707, end: 20080707
  3. METOPROLOL SUCCINATE [Concomitant]
     Dosage: 100MG PER DAY
     Dates: start: 20080707, end: 20080707
  4. DIGOXIN [Concomitant]
     Dosage: .25MG PER DAY
     Dates: start: 20080707, end: 20080707

REACTIONS (4)
  - ASTHENIA [None]
  - BRADYARRHYTHMIA [None]
  - DIZZINESS [None]
  - HYPOTENSION [None]
